FAERS Safety Report 7418745-8 (Version None)
Quarter: 2011Q2

REPORT INFORMATION
  Report Type: 
  Country: None (occurrence: None)
  Receive Date: 20110407
  Receipt Date: 20110331
  Transmission Date: 20111010
  Serious: Yes (Hospitalization, Other)
  Sender: FDA-Public Use
  Company Number: 2009SP043048

PATIENT
  Age: 30 Year
  Sex: Female
  Weight: 120.2032 kg

DRUGS (2)
  1. NUVARING [Suspect]
     Indication: CONTRACEPTION
     Dates: start: 20081101, end: 20081201
  2. MULTI-VITAMIN [Concomitant]

REACTIONS (12)
  - DRUG EXPOSURE BEFORE PREGNANCY [None]
  - UPPER RESPIRATORY TRACT INFECTION [None]
  - RHINITIS ALLERGIC [None]
  - VENOUS INSUFFICIENCY [None]
  - SINUSITIS [None]
  - PROTEIN C DECREASED [None]
  - BLOOD TRIGLYCERIDES INCREASED [None]
  - DYSPNOEA EXERTIONAL [None]
  - PAIN IN EXTREMITY [None]
  - PULMONARY EMBOLISM [None]
  - DEEP VEIN THROMBOSIS [None]
  - PREGNANCY [None]
